FAERS Safety Report 19679234 (Version 5)
Quarter: 2021Q3

REPORT INFORMATION
  Report Type: Spontaneous
  Country: US (occurrence: US)
  Receive Date: 20210809
  Receipt Date: 20210816
  Transmission Date: 20211014
  Serious: Yes (Hospitalization)
  Sender: FDA-Public Use
  Company Number: US-BIOGEN-2021BI01035568

PATIENT
  Age: 60 Year
  Sex: Male

DRUGS (2)
  1. TECFIDERA [Suspect]
     Active Substance: DIMETHYL FUMARATE
     Indication: MULTIPLE SCLEROSIS
     Route: 065
     Dates: start: 20150108
  2. TECFIDERA [Suspect]
     Active Substance: DIMETHYL FUMARATE
     Route: 065
     Dates: start: 20150108, end: 2021

REACTIONS (5)
  - Malaise [Unknown]
  - Fall [Recovered/Resolved]
  - Therapeutic product effect decreased [Unknown]
  - Multiple sclerosis relapse [Unknown]
  - Asthenia [Unknown]

NARRATIVE: CASE EVENT DATE: 202108
